FAERS Safety Report 14698127 (Version 1)
Quarter: 2018Q1

REPORT INFORMATION
  Report Type: Spontaneous
  Country: US (occurrence: US)
  Receive Date: 20180330
  Receipt Date: 20180330
  Transmission Date: 20180509
  Serious: Yes (Other)
  Sender: FDA-Public Use
  Company Number: US-CIPLA LTD.-2018US13501

PATIENT

DRUGS (1)
  1. TERBINAFINE. [Suspect]
     Active Substance: TERBINAFINE
     Indication: ONYCHOMYCOSIS
     Dosage: 250 MG, A TABLET PER A DAY
     Route: 048
     Dates: start: 20180113

REACTIONS (6)
  - Back pain [Recovering/Resolving]
  - Pyrexia [Unknown]
  - Myalgia [Unknown]
  - Vomiting [Unknown]
  - Headache [Recovering/Resolving]
  - Fatigue [Unknown]
